FAERS Safety Report 13272995 (Version 2)
Quarter: 2017Q2

REPORT INFORMATION
  Report Type: Spontaneous
  Country: ES (occurrence: ES)
  Receive Date: 20170227
  Receipt Date: 20170413
  Transmission Date: 20170830
  Serious: Yes (Other)
  Sender: FDA-Public Use
  Company Number: ES-009507513-1702ESP009321

PATIENT
  Age: 33 Year
  Sex: Male
  Weight: 78 kg

DRUGS (3)
  1. BRIDION [Suspect]
     Active Substance: SUGAMMADEX
     Indication: NEUROMUSCULAR BLOCKADE REVERSAL
     Dosage: 4 MG/KG, ONCE
     Route: 042
     Dates: start: 201702, end: 201702
  2. ESMERON [Suspect]
     Active Substance: ROCURONIUM BROMIDE
     Indication: MUSCLE RELAXANT THERAPY
     Dosage: 1.2 MG/KG, FREQUENCY REPORTED AS: 45 MIN
     Route: 042
     Dates: start: 201702, end: 201702
  3. ESMERON [Suspect]
     Active Substance: ROCURONIUM BROMIDE
     Dosage: 2 MG/KG, UNK
     Route: 042
     Dates: start: 201702, end: 201702

REACTIONS (5)
  - Wrong drug administered [Unknown]
  - Product label confusion [Unknown]
  - Circumstance or information capable of leading to medication error [Unknown]
  - Apnoea [Recovered/Resolved]
  - Product supply issue [Unknown]

NARRATIVE: CASE EVENT DATE: 201702
